FAERS Safety Report 8326992-6 (Version None)
Quarter: 2012Q2

REPORT INFORMATION
  Report Type: 
  Country: None (occurrence: None)
  Receive Date: 20120501
  Receipt Date: 20111109
  Transmission Date: 20120825
  Serious: No
  Sender: FDA-Public Use
  Company Number: US-SANOFI-AVENTIS-2011SA075564

PATIENT
  Age: 61 Year
  Sex: Male

DRUGS (2)
  1. SOLOSTAR [Suspect]
     Dates: start: 20060101
  2. APIDRA [Suspect]
     Dosage: TAKING INSULIN GLULISINE ON SLIDING SCALE DOSE THREE TIMES A DAY
     Route: 058
     Dates: start: 20060101

REACTIONS (1)
  - VISUAL IMPAIRMENT [None]
